FAERS Safety Report 10305969 (Version 1)
Quarter: 2014Q3

REPORT INFORMATION
  Report Type: Spontaneous
  Country: AU (occurrence: None)
  Receive Date: 20140711
  Receipt Date: 20140711
  Transmission Date: 20150326
  Serious: Yes (Hospitalization)
  Sender: FDA-Public Use
  Company Number: IPC201407-000333

PATIENT
  Age: 66 Year
  Sex: Female

DRUGS (6)
  1. METFORMIN HYDROCHLORIDE. [Suspect]
     Active Substance: METFORMIN HYDROCHLORIDE
     Indication: TYPE 2 DIABETES MELLITUS
  2. ATORVASTATIN (ATORVASTATIN) (ATORVASTATIN) [Concomitant]
     Active Substance: ATORVASTATIN
  3. GLICLAZIDE (GLICLAZIDE) (GLICLAZIDE) [Concomitant]
  4. ASPIRIN (ACETYLSALICYLIC ACID) (ACETYLSALIC ACID) [Concomitant]
  5. HYDROCHLOROTHIAZIDE. [Suspect]
     Active Substance: HYDROCHLOROTHIAZIDE
  6. RAMIPRIL. [Suspect]
     Active Substance: RAMIPRIL

REACTIONS (13)
  - Renal failure acute [None]
  - Shock [None]
  - Lactic acidosis [None]
  - Troponin increased [None]
  - Drug level increased [None]
  - Cardiac arrest [None]
  - Dehydration [None]
  - Blood potassium increased [None]
  - Continuous haemodiafiltration [None]
  - Pulseless electrical activity [None]
  - Intestinal ischaemia [None]
  - Blood glucose decreased [None]
  - Metabolic acidosis [None]
